FAERS Safety Report 10372346 (Version 1)
Quarter: 2014Q3

REPORT INFORMATION
  Report Type: Spontaneous
  Country: US (occurrence: US)
  Receive Date: 20140808
  Receipt Date: 20140808
  Transmission Date: 20150326
  Serious: No
  Sender: FDA-Public Use
  Company Number: US-BRISTOL-MYERS SQUIBB COMPANY-19105923

PATIENT
  Age: 62 Year
  Sex: Female

DRUGS (2)
  1. STIVARGA [Suspect]
     Active Substance: REGORAFENIB
     Indication: COLON CANCER
     Dosage: STRENGTH-40MG TABLET
     Route: 048
     Dates: start: 20130611
  2. SPRYCEL [Suspect]
     Active Substance: DASATINIB

REACTIONS (1)
  - Adverse event [Unknown]
